FAERS Safety Report 8442803-2 (Version None)
Quarter: 2012Q2

REPORT INFORMATION
  Report Type: 
  Country: None (occurrence: None)
  Receive Date: 20120615
  Receipt Date: 20120608
  Transmission Date: 20120825
  Serious: Yes (Hospitalization)
  Sender: FDA-Public Use
  Company Number: NZ-B.I. PHARMACEUTICALS,INC./RIDGEFIELD-2012-AU-00970AU

PATIENT
  Sex: Female
  Weight: 73 kg

DRUGS (6)
  1. ACETAMINOPHEN [Concomitant]
  2. FLECAINIDE ACETATE [Concomitant]
     Dosage: 200 MG
     Dates: start: 20120323, end: 20120403
  3. CAL D-FORTE [Concomitant]
     Dosage: 1.25 MG ONCE MONTHLY
     Dates: start: 20110331
  4. ATORVASTATIN CALCIUM [Concomitant]
     Dosage: 40 MG
     Dates: start: 20120308
  5. PRADAXA [Suspect]
     Indication: CEREBROVASCULAR ACCIDENT PROPHYLAXIS
     Dosage: 300 MG
     Dates: start: 20120224, end: 20120403
  6. METOPROLOL SUCCINATE [Concomitant]
     Dosage: 23.75 MG
     Dates: start: 20120220, end: 20120430

REACTIONS (5)
  - TROPONIN INCREASED [None]
  - MYOCARDIAL INFARCTION [None]
  - CARDIOVASCULAR DISORDER [None]
  - LEFT VENTRICULAR DYSFUNCTION [None]
  - CHEST PAIN [None]
